FAERS Safety Report 16958686 (Version 1)
Quarter: 2019Q4

REPORT INFORMATION
  Report Type: Report from Study
  Country: HR (occurrence: HR)
  Receive Date: 20191024
  Receipt Date: 20191024
  Transmission Date: 20200122
  Serious: Yes (Death)
  Sender: FDA-Public Use
  Company Number: HR-JNJFOC-20191030632

PATIENT
  Age: 2 Week
  Sex: Male

DRUGS (5)
  1. REMICADE [Suspect]
     Active Substance: INFLIXIMAB
     Indication: RHEUMATOID ARTHRITIS
     Route: 064
  2. METHOTREXATE. [Concomitant]
     Active Substance: METHOTREXATE
     Route: 064
  3. PARACETAMOL [Concomitant]
     Active Substance: ACETAMINOPHEN
     Route: 064
  4. FOLIC ACID. [Concomitant]
     Active Substance: FOLIC ACID
     Route: 064
  5. REMICADE [Suspect]
     Active Substance: INFLIXIMAB
     Route: 064
     Dates: start: 201004

REACTIONS (2)
  - Sepsis [Fatal]
  - Foetal exposure during pregnancy [Recovered/Resolved]

NARRATIVE: CASE EVENT DATE: 2010
